FAERS Safety Report 9900292 (Version 1)
Quarter: 2014Q1

REPORT INFORMATION
  Report Type: Spontaneous
  Country: US (occurrence: US)
  Receive Date: 20140215
  Receipt Date: 20140215
  Transmission Date: 20141002
  Serious: No
  Sender: FDA-Public Use
  Company Number: US-B.I. PHARMACEUTICALS,INC./RIDGEFIELD-2014-BI-06565BP

PATIENT
  Sex: Male

DRUGS (13)
  1. SPIRIVA [Suspect]
     Indication: CHRONIC OBSTRUCTIVE PULMONARY DISEASE
     Dosage: 18 MCG
     Route: 055
  2. LOSARTAN [Concomitant]
     Route: 048
  3. METOPROLOL [Concomitant]
     Route: 048
  4. FUROSEMIDE [Concomitant]
     Route: 048
  5. SPRIONOLACTONE [Concomitant]
     Route: 048
  6. OMEPRAZOLE [Concomitant]
     Route: 048
  7. MULTIVITAMIN [Concomitant]
     Route: 048
  8. FOLIC ACID [Concomitant]
     Route: 048
  9. DULARA [Concomitant]
     Route: 055
  10. CLARITHROMYCIN [Concomitant]
     Route: 048
  11. ETHAMBUTOL [Concomitant]
     Route: 048
  12. RIFAMPIN [Concomitant]
     Route: 048
  13. COMBIVENT RESPIMAT [Concomitant]
     Dosage: FORMULATION:INHALATION AEROSOL; STRENGTH: 20 MCG/ 100 MCG; DAILY DOSE: 80 MCG/ 400 MCG
     Route: 055

REACTIONS (1)
  - Drug ineffective [Not Recovered/Not Resolved]
